FAERS Safety Report 6112083-1 (Version None)
Quarter: 2009Q1

REPORT INFORMATION
  Report Type: 
  Country: None (occurrence: None)
  Receive Date: 20090311
  Receipt Date: 20090218
  Transmission Date: 20090719
  Serious: Yes (Hospitalization)
  Sender: FDA-Public Use
  Company Number: AU-PFIZER INC-2009172325

PATIENT

DRUGS (8)
  1. MARAVIROC [Suspect]
     Indication: HIV INFECTION
     Dosage: 150 MG, 2X/DAY
     Route: 048
     Dates: start: 20071112
  2. VIREAD [Concomitant]
     Dosage: UNK
     Route: 048
     Dates: start: 20071109
  3. KALETRA [Concomitant]
     Route: 048
     Dates: start: 20071109, end: 20081205
  4. CREATINE [Concomitant]
     Dosage: UNK
     Route: 048
     Dates: start: 20031215
  5. ACYCLOVIR [Concomitant]
     Route: 048
     Dates: start: 20021121
  6. GLUTAMINE [Concomitant]
     Dosage: UNK
     Route: 048
     Dates: start: 20031215
  7. SOY LECITHIN/WHEY PROTEINS [Concomitant]
     Dosage: UNK
     Route: 048
     Dates: start: 20071215
  8. MULTI-VITAMINS [Concomitant]
     Route: 048

REACTIONS (1)
  - URINARY TRACT INFECTION [None]
